FAERS Safety Report 5421783-8 (Version None)
Quarter: 2007Q3

REPORT INFORMATION
  Report Type: 
  Country: None (occurrence: None)
  Receive Date: 20070820
  Receipt Date: 20070806
  Transmission Date: 20080115
  Serious: Yes (Death)
  Sender: FDA-Public Use
  Company Number: 159905USA

PATIENT
  Age: 31 Year
  Sex: Male

DRUGS (3)
  1. GABAPENTIN [Suspect]
     Indication: ATTENTION DEFICIT/HYPERACTIVITY DISORDER
     Dosage: (800 MG), ORAL
     Route: 048
     Dates: start: 20030103, end: 20070705
  2. GABAPENTIN [Suspect]
     Indication: BIPOLAR DISORDER
     Dosage: (800 MG), ORAL
     Route: 048
     Dates: start: 20030103, end: 20070705
  3. GABAPENTIN [Suspect]
     Indication: MANIA
     Dosage: (800 MG), ORAL
     Route: 048
     Dates: start: 20030103, end: 20070705

REACTIONS (1)
  - COMPLETED SUICIDE [None]
